FAERS Safety Report 4381456-X (Version None)
Quarter: 2004Q2

REPORT INFORMATION
  Report Type: 
  Country: None (occurrence: None)
  Receive Date: 20040616
  Receipt Date: 20040603
  Transmission Date: 20050107
  Serious: Yes (Death, Life-Threatening)
  Sender: FDA-Public Use
  Company Number: 001-0945-M0101475

PATIENT
  Sex: Female

DRUGS (4)
  1. NEURONTIN [Suspect]
     Indication: BACK PAIN
  2. HYDROXYZINE HYDROCHLORIDE [Suspect]
     Indication: ILL-DEFINED DISORDER
  3. HYDROCODONE BITARTRATE [Concomitant]
  4. FENTANYL [Concomitant]

REACTIONS (4)
  - COMPLETED SUICIDE [None]
  - OVERDOSE [None]
  - SUICIDAL IDEATION [None]
  - VICTIM OF HOMICIDE [None]
